FAERS Safety Report 18330725 (Version 4)
Quarter: 2022Q4

REPORT INFORMATION
  Report Type: Spontaneous
  Country: US (occurrence: None)
  Receive Date: 20200930
  Receipt Date: 20221202
  Transmission Date: 20230112
  Serious: Yes (Death, Hospitalization, Other)
  Sender: FDA-Public Use
  Company Number: 2018SF26497

PATIENT
  Age: 26186 Day
  Sex: Female
  Weight: 56.2 kg

DRUGS (116)
  1. NEXIUM [Suspect]
     Active Substance: ESOMEPRAZOLE MAGNESIUM
     Indication: Gastrooesophageal reflux disease
     Route: 048
     Dates: start: 1998, end: 2017
  2. NEXIUM [Suspect]
     Active Substance: ESOMEPRAZOLE MAGNESIUM
     Indication: Gastrooesophageal reflux disease
     Dosage: GENERIC-40 MG ONCE A DAY AND TWO TIMES A DAY
     Route: 065
     Dates: start: 2015, end: 2017
  3. NEXIUM [Suspect]
     Active Substance: ESOMEPRAZOLE MAGNESIUM
     Indication: Gastrooesophageal reflux disease
     Dosage: 40 MG ONCE A DAY AND TWO TIMES A DAY
     Route: 048
     Dates: start: 2002, end: 2004
  4. NEXIUM [Suspect]
     Active Substance: ESOMEPRAZOLE MAGNESIUM
     Indication: Gastrooesophageal reflux disease
     Dosage: 40 MG ONCE A DAY AND TWO TIMES A DAY
     Route: 048
     Dates: start: 2007
  5. NEXIUM [Suspect]
     Active Substance: ESOMEPRAZOLE MAGNESIUM
     Indication: Gastrooesophageal reflux disease
     Dosage: 40 MG ONCE A DAY AND TWO TIMES A DAY
     Route: 048
     Dates: start: 2009, end: 2014
  6. PRILOSEC [Suspect]
     Active Substance: OMEPRAZOLE MAGNESIUM
     Indication: Gastrooesophageal reflux disease
     Route: 048
     Dates: start: 1998, end: 2017
  7. PRILOSEC [Suspect]
     Active Substance: OMEPRAZOLE MAGNESIUM
     Indication: Gastrooesophageal reflux disease
     Dosage: 20 MG ONCE A DAY AND/OR TWO TIMES A DAY
     Route: 048
     Dates: start: 1998, end: 2001
  8. PREVACID [Suspect]
     Active Substance: LANSOPRAZOLE
     Indication: Gastrooesophageal reflux disease
     Route: 065
     Dates: start: 1998, end: 2017
  9. PREVACID [Suspect]
     Active Substance: LANSOPRAZOLE
     Indication: Gastrooesophageal reflux disease
     Dosage: 30 MG ONCE A DAY AND/OR TWO TIMES A DAY
     Route: 065
     Dates: start: 1999
  10. DEXILANT [Suspect]
     Active Substance: DEXLANSOPRAZOLE
     Indication: Gastrooesophageal reflux disease
     Dosage: 60 MG ONCE A DAY AND/OR TWO TIMES A DAY
     Route: 065
     Dates: start: 2012
  11. PANTOPRAZOLE [Suspect]
     Active Substance: PANTOPRAZOLE
     Indication: Gastrooesophageal reflux disease
     Dosage: 40 MG ONCE A DAY AND/OR TWO TIMES A DAY- GENERIC
     Route: 065
     Dates: start: 2013
  12. LEUCINE/ASPARTIC ACID/GLUTAMIC ACID/VALINE/ALANINE/PHENYLALANINE/HISTI [Concomitant]
     Indication: Acid base balance
     Dates: start: 1998, end: 1999
  13. ADVAIR DISKUS [Concomitant]
     Active Substance: FLUTICASONE PROPIONATE\SALMETEROL XINAFOATE
     Indication: Chronic obstructive pulmonary disease
     Dates: start: 2002
  14. AGGRENOX [Concomitant]
     Active Substance: ASPIRIN\DIPYRIDAMOLE
     Indication: Cerebrovascular accident
     Dates: start: 2013
  15. ALBUTEROL [Concomitant]
     Active Substance: ALBUTEROL
     Indication: Bronchospasm
     Dates: start: 1998, end: 1999
  16. ALBUTEROL [Concomitant]
     Active Substance: ALBUTEROL
     Indication: Bronchospasm
     Dates: start: 2010
  17. ALBUTEROL [Concomitant]
     Active Substance: ALBUTEROL
     Indication: Bronchospasm
     Dates: start: 2014
  18. ALLEGRA [Concomitant]
     Active Substance: FEXOFENADINE HYDROCHLORIDE
     Indication: Seasonal allergy
     Dates: start: 1998
  19. ALLEGRA [Concomitant]
     Active Substance: FEXOFENADINE HYDROCHLORIDE
     Indication: Urticaria
     Dates: start: 1998
  20. ALLEGRA [Concomitant]
     Active Substance: FEXOFENADINE HYDROCHLORIDE
     Indication: Pruritus
     Dates: start: 1998
  21. ALLEGRA [Concomitant]
     Active Substance: FEXOFENADINE HYDROCHLORIDE
     Indication: Seasonal allergy
     Dates: start: 2000
  22. ALLEGRA [Concomitant]
     Active Substance: FEXOFENADINE HYDROCHLORIDE
     Indication: Urticaria
     Dates: start: 2000
  23. ALLEGRA [Concomitant]
     Active Substance: FEXOFENADINE HYDROCHLORIDE
     Indication: Pruritus
     Dates: start: 2000
  24. ALLEGRA [Concomitant]
     Active Substance: FEXOFENADINE HYDROCHLORIDE
     Indication: Seasonal allergy
     Dates: start: 2003
  25. ALLEGRA [Concomitant]
     Active Substance: FEXOFENADINE HYDROCHLORIDE
     Indication: Urticaria
     Dates: start: 2003
  26. ALLEGRA [Concomitant]
     Active Substance: FEXOFENADINE HYDROCHLORIDE
     Indication: Pruritus
     Dates: start: 2003
  27. ALPRAZOLAM [Concomitant]
     Active Substance: ALPRAZOLAM
     Indication: Anxiety
     Dates: start: 2012
  28. ALPRAZOLAM [Concomitant]
     Active Substance: ALPRAZOLAM
     Indication: Panic disorder
     Dates: start: 2012
  29. AMBIEN [Concomitant]
     Active Substance: ZOLPIDEM TARTRATE
     Indication: Insomnia
     Dates: start: 2001, end: 2017
  30. AMITRIPTYLINE [Concomitant]
     Active Substance: AMITRIPTYLINE
     Indication: Depression
     Dates: start: 1998
  31. AMITRIPTYLINE [Concomitant]
     Active Substance: AMITRIPTYLINE
     Indication: Neuralgia
     Dates: start: 1998
  32. AMITRIPTYLINE [Concomitant]
     Active Substance: AMITRIPTYLINE
     Indication: Depression
     Dates: start: 2003, end: 2004
  33. AMITRIPTYLINE [Concomitant]
     Active Substance: AMITRIPTYLINE
     Indication: Neuralgia
     Dates: start: 2003, end: 2004
  34. AMLODIPINE [Concomitant]
     Active Substance: AMLODIPINE BESYLATE
     Indication: Hypertension
     Dates: start: 2008
  35. AMLODIPINE [Concomitant]
     Active Substance: AMLODIPINE BESYLATE
     Indication: Chest pain
     Dates: start: 2008
  36. AMOX TR-POTASSIUM [Concomitant]
     Indication: Bacterial infection
     Dates: start: 2013
  37. AMOXICILLIN [Concomitant]
     Active Substance: AMOXICILLIN
     Indication: Infection
     Dates: start: 2007, end: 2008
  38. AMOXICILLIN [Concomitant]
     Active Substance: AMOXICILLIN
     Indication: Gastric ulcer
     Dates: start: 2007, end: 2008
  39. AQUATAB DM [Concomitant]
     Indication: Cough
     Dates: start: 2000
  40. AQUATAB DM [Concomitant]
     Indication: Bronchitis
     Dates: start: 2000
  41. AQUATAB DM [Concomitant]
     Indication: Respiration abnormal
     Dates: start: 2000
  42. ATROVENT [Concomitant]
     Active Substance: IPRATROPIUM BROMIDE
     Indication: Chronic obstructive pulmonary disease
     Dates: start: 2001
  43. ATROVENT [Concomitant]
     Active Substance: IPRATROPIUM BROMIDE
     Indication: Asthma
     Dates: start: 2001
  44. AUGMENTIN [Concomitant]
     Active Substance: AMOXICILLIN\CLAVULANATE POTASSIUM
     Indication: Infection
     Dates: start: 1998
  45. AVAPRO [Concomitant]
     Active Substance: IRBESARTAN
     Indication: Hypertension
     Dates: start: 1998, end: 1999
  46. AVAPRO [Concomitant]
     Active Substance: IRBESARTAN
     Indication: Diabetic nephropathy
     Dates: start: 1998, end: 1999
  47. AVELOX [Concomitant]
     Active Substance: MOXIFLOXACIN HYDROCHLORIDE
     Indication: Infection
     Dates: start: 2003
  48. AZITHROMYCIN [Concomitant]
     Active Substance: AZITHROMYCIN
     Indication: Infection
     Dates: start: 2017, end: 2018
  49. BACTROBAN [Concomitant]
     Active Substance: MUPIROCIN\MUPIROCIN CALCIUM
     Indication: Skin infection
     Dates: start: 1998
  50. BENZONATATE [Concomitant]
     Active Substance: BENZONATATE
     Indication: Cough
     Dates: start: 2008
  51. BETAMETHASONE [Concomitant]
     Active Substance: BETAMETHASONE
     Indication: Inflammation
     Dates: start: 1998, end: 1999
  52. BIAXIN [Concomitant]
     Active Substance: CLARITHROMYCIN
     Indication: Infection
     Dates: start: 1998
  53. BIAXIN [Concomitant]
     Active Substance: CLARITHROMYCIN
     Indication: Duodenal ulcer
     Dates: start: 1998
  54. BUSPIRONE [Concomitant]
     Active Substance: BUSPIRONE HYDROCHLORIDE
     Indication: Anxiety
     Dates: start: 2015, end: 2017
  55. CALCIUM CARBONATE\ERGOCALCIFEROL\RETINOL [Concomitant]
     Active Substance: CALCIUM CARBONATE\ERGOCALCIFEROL\RETINOL
     Indication: Blood calcium decreased
     Dates: start: 2015, end: 2017
  56. CALCIUM CARBONATE\ERGOCALCIFEROL\RETINOL [Concomitant]
     Active Substance: CALCIUM CARBONATE\ERGOCALCIFEROL\RETINOL
     Indication: Bone disorder
     Dates: start: 2015, end: 2017
  57. CALCIUM CARBONATE\ERGOCALCIFEROL\RETINOL [Concomitant]
     Active Substance: CALCIUM CARBONATE\ERGOCALCIFEROL\RETINOL
     Indication: Psoriasis
     Dates: start: 2015, end: 2017
  58. CARAFATE [Concomitant]
     Active Substance: SUCRALFATE
     Indication: Ulcer
     Dates: start: 2013, end: 2014
  59. CATAPRES-TTS [Concomitant]
     Active Substance: CLONIDINE
     Indication: Hypertension
     Dates: start: 2004, end: 2005
  60. CATAPRES-TTS [Concomitant]
     Active Substance: CLONIDINE
     Indication: Attention deficit hyperactivity disorder
     Dates: start: 2004, end: 2005
  61. CATAPRES-TTS [Concomitant]
     Active Substance: CLONIDINE
     Indication: Cancer pain
     Dates: start: 2004, end: 2005
  62. CEFDINIR [Concomitant]
     Active Substance: CEFDINIR
     Indication: Bacterial infection
     Dates: start: 2011, end: 2012
  63. CHANTIX [Concomitant]
     Active Substance: VARENICLINE TARTRATE
     Indication: Smoking cessation therapy
     Dates: start: 2011
  64. CHLORDIAZEPOXIDE CLIDINIUM [Concomitant]
     Active Substance: CHLORDIAZEPOXIDE HYDROCHLORIDE\CLIDINIUM BROMIDE
     Indication: Ulcer
     Dates: start: 2007
  65. CHLORDIAZEPOXIDE CLIDINIUM [Concomitant]
     Active Substance: CHLORDIAZEPOXIDE HYDROCHLORIDE\CLIDINIUM BROMIDE
     Indication: Inflammatory bowel disease
     Dates: start: 2007
  66. CHLOREX [Concomitant]
     Indication: Ulcer
     Dates: start: 2014
  67. CHLOREX [Concomitant]
     Indication: Inflammatory bowel disease
     Dates: start: 2014
  68. CILOSTAZOL [Concomitant]
     Active Substance: CILOSTAZOL
     Dates: start: 2010
  69. CIPROFLOXACIN [Concomitant]
     Active Substance: CIPROFLOXACIN
     Indication: Infection
     Dates: start: 2008
  70. CITALOPRAM [Concomitant]
     Active Substance: CITALOPRAM HYDROBROMIDE
     Indication: Depression
     Dates: start: 2008
  71. CLINDAMYCIN [Concomitant]
     Active Substance: CLINDAMYCIN
     Indication: Infection
     Dates: start: 2013
  72. CLOPIDOGREL [Concomitant]
     Active Substance: CLOPIDOGREL BISULFATE
     Indication: Anticoagulant therapy
     Dates: start: 2012, end: 2018
  73. CRESTOR [Concomitant]
     Active Substance: ROSUVASTATIN CALCIUM
     Indication: Blood cholesterol increased
     Dates: start: 2005
  74. CRESTOR [Concomitant]
     Active Substance: ROSUVASTATIN CALCIUM
     Indication: Blood triglycerides abnormal
     Dates: start: 2005
  75. CYCLOBENZAPRINE [Concomitant]
     Active Substance: CYCLOBENZAPRINE
     Indication: Pain
     Dates: start: 2000, end: 2001
  76. CYCLOBENZAPRINE [Concomitant]
     Active Substance: CYCLOBENZAPRINE
     Indication: Musculoskeletal stiffness
     Dates: start: 2000, end: 2001
  77. HYDROCORTISONE [Concomitant]
     Active Substance: HYDROCORTISONE
     Indication: Skin disorder
     Dates: start: 2011
  78. HYDROXYZINE [Concomitant]
     Active Substance: HYDROXYZINE HYDROCHLORIDE
     Indication: Anxiety
     Dates: start: 2011
  79. HYDROXYZINE [Concomitant]
     Active Substance: HYDROXYZINE HYDROCHLORIDE
     Indication: Nausea
     Dates: start: 2011
  80. HYDROXYZINE [Concomitant]
     Active Substance: HYDROXYZINE HYDROCHLORIDE
     Indication: Vomiting
     Dates: start: 2011
  81. HYDROXYZINE [Concomitant]
     Active Substance: HYDROXYZINE HYDROCHLORIDE
     Indication: Rash
     Dates: start: 2011
  82. HYDROXYZINE [Concomitant]
     Active Substance: HYDROXYZINE HYDROCHLORIDE
     Indication: Urticaria
     Dates: start: 2011
  83. ASPIRIN [Concomitant]
     Active Substance: ASPIRIN
     Indication: Cerebrovascular accident
     Dates: start: 2019
  84. ASPIRIN [Concomitant]
     Active Substance: ASPIRIN
     Indication: Cardiac disorder
     Dates: start: 2019
  85. PRAVASTATIN [Concomitant]
     Active Substance: PRAVASTATIN
  86. TIOTROPIUM [Concomitant]
     Active Substance: TIOTROPIUM
  87. ACETAMINOPHEN\HYDROCODONE [Concomitant]
     Active Substance: ACETAMINOPHEN\HYDROCODONE
  88. METRONIDAZOLE [Concomitant]
     Active Substance: METRONIDAZOLE
  89. SILENOR [Concomitant]
     Active Substance: DOXEPIN HYDROCHLORIDE
  90. DIAZEPAM [Concomitant]
     Active Substance: DIAZEPAM
  91. TRENTAL [Concomitant]
     Active Substance: PENTOXIFYLLINE
  92. VERAPAMIL [Concomitant]
     Active Substance: VERAPAMIL HYDROCHLORIDE
  93. ACETAMINOPHEN\DICHLORALPHENAZONE\ISOMETHEPTENE MUCATE [Concomitant]
     Active Substance: ACETAMINOPHEN\DICHLORALPHENAZONE\ISOMETHEPTENE MUCATE
  94. FIDAXOMICIN [Concomitant]
     Active Substance: FIDAXOMICIN
  95. ACI-JEL [Concomitant]
  96. AMITRIPTYLINE [Concomitant]
     Active Substance: AMITRIPTYLINE
  97. BYDUREON [Concomitant]
     Active Substance: EXENATIDE
  98. FLECTOR [Concomitant]
     Active Substance: DICLOFENAC EPOLAMINE
  99. ERYTHROMYCIN [Concomitant]
     Active Substance: ERYTHROMYCIN
  100. EPITOL [Concomitant]
     Active Substance: CARBAMAZEPINE
  101. DURAGESIC [Concomitant]
     Active Substance: FENTANYL
  102. HYOSCYAMINE [Concomitant]
     Active Substance: HYOSCYAMINE
  103. LIDEX [Concomitant]
     Active Substance: FLUOCINONIDE
  104. MAVIK [Concomitant]
     Active Substance: TRANDOLAPRIL
  105. PROPACET [Concomitant]
     Active Substance: ACETAMINOPHEN\PROPOXYPHENE NAPSYLATE
  106. SUPREP BOWEL PREP [Concomitant]
     Active Substance: MAGNESIUM SULFATE\POTASSIUM SULFATE\SODIUM SULFATE
  107. ZELNORM [Concomitant]
     Active Substance: TEGASEROD MALEATE
  108. VIOXX [Concomitant]
     Active Substance: ROFECOXIB
  109. DEMADEX [Concomitant]
     Active Substance: TORSEMIDE
  110. TOPROL XL [Concomitant]
     Active Substance: METOPROLOL SUCCINATE
  111. ROCALTROL [Concomitant]
     Active Substance: CALCITRIOL
  112. SINEQUAN [Concomitant]
     Active Substance: DOXEPIN HYDROCHLORIDE
  113. BENTYL [Concomitant]
     Active Substance: DICYCLOMINE HYDROCHLORIDE
  114. LORCET [Concomitant]
     Active Substance: ACETAMINOPHEN\HYDROCODONE BITARTRATE
  115. PAXIL [Concomitant]
     Active Substance: PAROXETINE HYDROCHLORIDE
  116. PRAVACHOL [Concomitant]
     Active Substance: PRAVASTATIN SODIUM

REACTIONS (9)
  - Acute respiratory failure [Fatal]
  - Acute coronary syndrome [Fatal]
  - Acute left ventricular failure [Fatal]
  - Chronic kidney disease [Fatal]
  - End stage renal disease [Unknown]
  - Acute kidney injury [Unknown]
  - Renal failure [Unknown]
  - Nephritis [Unknown]
  - Hyperparathyroidism secondary [Unknown]

NARRATIVE: CASE EVENT DATE: 20141113
